FAERS Safety Report 9465844 (Version 3)
Quarter: 2013Q4

REPORT INFORMATION
  Report Type: Spontaneous
  Country: US (occurrence: US)
  Receive Date: 20130820
  Receipt Date: 20131210
  Transmission Date: 20140711
  Serious: No
  Sender: FDA-Public Use
  Company Number: US-009507513-1308USA006037

PATIENT
  Sex: Male

DRUGS (3)
  1. VICTRELIS [Suspect]
     Indication: CHRONIC HEPATITIS C
     Dosage: UNK
     Route: 048
     Dates: start: 20130720
  2. RIBAVIRIN [Suspect]
     Indication: CHRONIC HEPATITIS C
     Dosage: DIVIDED DOSES, 1200 MG DAILY, FOR 7 WEEK
     Route: 048
     Dates: start: 20130626
  3. PEGASYS [Suspect]
     Indication: CHRONIC HEPATITIS C
     Dosage: 180 MICROGRAM, FOR 7 WEEKS
     Route: 058
     Dates: start: 20130626

REACTIONS (4)
  - Viral load decreased [Unknown]
  - Rash pruritic [Unknown]
  - Arthralgia [Unknown]
  - Influenza like illness [Unknown]
